FAERS Safety Report 7139348-9 (Version None)
Quarter: 2010Q4

REPORT INFORMATION
  Report Type: 
  Country: None (occurrence: None)
  Receive Date: 20101206
  Receipt Date: 20101122
  Transmission Date: 20110411
  Serious: Yes (Death, Other)
  Sender: FDA-Public Use
  Company Number: US-AMGEN-USASP2010004773

PATIENT

DRUGS (10)
  1. NPLATE [Suspect]
     Indication: IDIOPATHIC THROMBOCYTOPENIC PURPURA
     Dosage: 250 A?G, UNK
     Dates: start: 20100517, end: 20100617
  2. NPLATE [Suspect]
     Dosage: 100 A?G, UNK
     Dates: start: 20100520
  3. NPLATE [Suspect]
     Dosage: 100 A?G, UNK
     Dates: start: 20100524
  4. NPLATE [Suspect]
     Dosage: 100 A?G, UNK
     Dates: start: 20100527
  5. NPLATE [Suspect]
     Dosage: 250 A?G, UNK
     Dates: start: 20100603
  6. NPLATE [Suspect]
     Dosage: 250 A?G, UNK
     Dates: start: 20100610
  7. NPLATE [Suspect]
     Dosage: 250 A?G, UNK
     Dates: start: 20100617
  8. RITUXIMAB [Concomitant]
     Indication: IDIOPATHIC THROMBOCYTOPENIC PURPURA
  9. CORTICOSTEROIDS [Suspect]
     Indication: IDIOPATHIC THROMBOCYTOPENIC PURPURA
  10. CYCLOPHOSPHAMIDE [Concomitant]

REACTIONS (3)
  - MANTLE CELL LYMPHOMA [None]
  - METASTASES TO CENTRAL NERVOUS SYSTEM [None]
  - THROMBOCYTOPENIA [None]
